FAERS Safety Report 10957678 (Version 11)
Quarter: 2016Q1

REPORT INFORMATION
  Report Type: Spontaneous
  Country: US (occurrence: US)
  Receive Date: 20150326
  Receipt Date: 20160226
  Transmission Date: 20160525
  Serious: Yes (Life-Threatening, Hospitalization, Disabling, Other)
  Sender: FDA-Public Use
  Company Number: US-ELI_LILLY_AND_COMPANY-US201502009538

PATIENT
  Age: 44 Year
  Sex: Female

DRUGS (15)
  1. ASPIRIN                            /00002701/ [Concomitant]
     Active Substance: ASPIRIN
  2. MULTI VITAMIN [Concomitant]
     Active Substance: VITAMINS
  3. CYMBALTA [Suspect]
     Active Substance: DULOXETINE HYDROCHLORIDE
     Dosage: 30 MG, BID
     Route: 048
     Dates: start: 20121227
  4. HYDROXYZINE HYDROCHLORIDE. [Concomitant]
     Active Substance: HYDROXYZINE HYDROCHLORIDE
  5. IBUPROFEN. [Concomitant]
     Active Substance: IBUPROFEN
  6. CYMBALTA [Suspect]
     Active Substance: DULOXETINE HYDROCHLORIDE
     Indication: BACK PAIN
     Dosage: 30 MG, QD
     Route: 048
  7. CYMBALTA [Suspect]
     Active Substance: DULOXETINE HYDROCHLORIDE
     Indication: NEURALGIA
     Dosage: 60 MG, QD
     Route: 048
     Dates: end: 20121209
  8. CYMBALTA [Suspect]
     Active Substance: DULOXETINE HYDROCHLORIDE
     Dosage: 30 MG, QD
     Route: 048
     Dates: start: 20121231, end: 20130114
  9. CYMBALTA [Suspect]
     Active Substance: DULOXETINE HYDROCHLORIDE
     Dosage: 30 MG, QD
     Route: 048
     Dates: start: 20121221
  10. ZANAFLEX [Concomitant]
     Active Substance: TIZANIDINE HYDROCHLORIDE
  11. NORTREL                            /00318901/ [Concomitant]
     Active Substance: LEVONORGESTREL
  12. PERCOCET                           /00446701/ [Concomitant]
     Active Substance: ACETAMINOPHEN\OXYCODONE HYDROCHLORIDE\OXYCODONE TEREPHTHALATE
  13. DIAZEPAM. [Concomitant]
     Active Substance: DIAZEPAM
  14. AMBIEN [Concomitant]
     Active Substance: ZOLPIDEM TARTRATE
  15. CYMBALTA [Suspect]
     Active Substance: DULOXETINE HYDROCHLORIDE
     Indication: NECK PAIN
     Dosage: 20 MG, QD
     Route: 048
     Dates: start: 20121004

REACTIONS (57)
  - Flushing [Recovered/Resolved]
  - Blindness transient [Recovered/Resolved]
  - Night sweats [Recovered/Resolved]
  - Decreased appetite [Recovered/Resolved]
  - Dizziness [Recovered/Resolved]
  - Nausea [Recovered/Resolved]
  - Insomnia [Recovering/Resolving]
  - Dysarthria [Unknown]
  - Serotonin syndrome [Recovered/Resolved]
  - Diplopia [Recovered/Resolved]
  - Flatulence [Recovered/Resolved]
  - Chills [Recovered/Resolved]
  - Weight fluctuation [Unknown]
  - Dry mouth [Unknown]
  - Haemodynamic instability [Unknown]
  - Syncope [Unknown]
  - Constipation [Recovered/Resolved]
  - Palpitations [Recovered/Resolved]
  - Vomiting [Recovered/Resolved]
  - Fatigue [Recovering/Resolving]
  - Akinesia [Unknown]
  - Dry throat [Unknown]
  - Abasia [Unknown]
  - Postural orthostatic tachycardia syndrome [Recovered/Resolved]
  - Autonomic nervous system imbalance [Recovered/Resolved]
  - Malaise [Recovered/Resolved]
  - Urinary retention [Recovered/Resolved]
  - Dyspnoea [Recovered/Resolved]
  - Asthenia [Unknown]
  - Dysphagia [Recovered/Resolved]
  - Drug hypersensitivity [Unknown]
  - Dysphemia [Recovered/Resolved]
  - Hallucination, visual [Recovered/Resolved]
  - Presyncope [Recovered/Resolved]
  - Headache [Recovered/Resolved]
  - Anxiety [Recovered/Resolved]
  - Sleep terror [Recovered/Resolved]
  - Heart rate increased [Unknown]
  - Intentional product misuse [Recovered/Resolved]
  - Blindness [Unknown]
  - Palpitations [Recovering/Resolving]
  - Blood pressure increased [Recovered/Resolved]
  - Abdominal pain [Recovered/Resolved]
  - Drug withdrawal syndrome [Recovered/Resolved]
  - Vertigo [Unknown]
  - Abdominal distension [Recovered/Resolved]
  - Balance disorder [Recovered/Resolved]
  - Hallucination [Recovered/Resolved]
  - Labile blood pressure [Unknown]
  - Weight increased [Unknown]
  - Orthostatic hypotension [Unknown]
  - Tremor [Recovered/Resolved]
  - Arrhythmia [Recovered/Resolved]
  - Vision blurred [Unknown]
  - General physical health deterioration [Unknown]
  - Hyperhidrosis [Unknown]
  - Chest pain [Unknown]

NARRATIVE: CASE EVENT DATE: 201501
